FAERS Safety Report 24990692 (Version 2)
Quarter: 2025Q1

REPORT INFORMATION
  Report Type: Spontaneous
  Country: KR (occurrence: KR)
  Receive Date: 20250220
  Receipt Date: 20250228
  Transmission Date: 20250408
  Serious: Yes (Life-Threatening, Other)
  Sender: NOVARTIS
  Company Number: KR-002147023-NVSC2025KR028092

PATIENT
  Age: 80 Year
  Sex: Female

DRUGS (5)
  1. NILOTINIB [Suspect]
     Active Substance: NILOTINIB
     Indication: Chronic myeloid leukaemia
     Route: 065
     Dates: start: 202206
  2. NILOTINIB [Suspect]
     Active Substance: NILOTINIB
     Route: 065
  3. ASCIMINIB [Suspect]
     Active Substance: ASCIMINIB
     Indication: Chronic myeloid leukaemia
     Dosage: 20 MG, BID (2YR9M AFTER PRIOR TKI)
     Route: 065
     Dates: start: 202403
  4. ASCIMINIB [Suspect]
     Active Substance: ASCIMINIB
     Dosage: 20 MG, QD
     Route: 065
     Dates: start: 202409
  5. ASCIMINIB [Suspect]
     Active Substance: ASCIMINIB
     Dosage: UNK, QD (2W ON/1W OFF)
     Route: 065
     Dates: start: 202412

REACTIONS (3)
  - Thrombocytopenia [Unknown]
  - Treatment failure [Unknown]
  - Drug intolerance [Unknown]
